FAERS Safety Report 9986463 (Version 1)
Quarter: 2014Q1

REPORT INFORMATION
  Report Type: Report from Study
  Country: US (occurrence: US)
  Receive Date: 20140307
  Receipt Date: 20140307
  Transmission Date: 20141002
  Serious: No
  Sender: FDA-Public Use
  Company Number: US-ABBVIE-13P-163-1088054-00

PATIENT
  Age: 83 Year
  Sex: Male

DRUGS (6)
  1. HUMIRA [Suspect]
     Indication: RHEUMATOID ARTHRITIS
     Dates: start: 201201
  2. LOSARTAN [Concomitant]
     Indication: BLOOD PRESSURE
  3. PANTOPRAZOLE [Concomitant]
     Indication: DYSPEPSIA
  4. AMLODIPINE BESYLATE [Concomitant]
     Indication: BLOOD PRESSURE
  5. SERTRALINE [Concomitant]
     Indication: NERVOUS SYSTEM DISORDER
  6. NITROSTAT [Concomitant]
     Indication: CHEST PAIN

REACTIONS (1)
  - Rash pruritic [Not Recovered/Not Resolved]
